FAERS Safety Report 9437673 (Version 1)
Quarter: 2013Q3

REPORT INFORMATION
  Report Type: Spontaneous
  Country: GB (occurrence: None)
  Receive Date: 20130731
  Receipt Date: 20130731
  Transmission Date: 20140515
  Serious: Yes (Other)
  Sender: FDA-Public Use
  Company Number: AUR-APL-2013-06222

PATIENT
  Age: 18 Year
  Sex: Female
  Weight: 25.86 kg

DRUGS (2)
  1. SERTRALINE [Suspect]
     Indication: ANXIETY
     Route: 048
     Dates: start: 20130313, end: 20130417
  2. SERTRALINE [Suspect]
     Indication: DEPRESSION
     Route: 048
     Dates: start: 20130313, end: 20130417

REACTIONS (8)
  - Syncope [None]
  - Headache [None]
  - Flatulence [None]
  - Malaise [None]
  - Nausea [None]
  - Decreased appetite [None]
  - Muscle spasms [None]
  - Visual impairment [None]
